FAERS Safety Report 10977204 (Version 1)
Quarter: 2015Q1

REPORT INFORMATION
  Report Type: Spontaneous
  Country: None (occurrence: None)
  Receive Date: 20150330
  Receipt Date: 20150330
  Transmission Date: 20150721
  Serious: Yes (Death)
  Sender: FDA-Public Use
  Company Number: 2015SA002899

PATIENT
  Age: 71 Year
  Sex: Male
  Weight: 77.5 kg

DRUGS (7)
  1. FLONASE [Concomitant]
     Active Substance: FLUTICASONE PROPIONATE
  2. MUCINEX [Concomitant]
     Active Substance: GUAIFENESIN
  3. ZOFRAN [Concomitant]
     Active Substance: ONDANSETRON HYDROCHLORIDE
  4. AMARYL [Suspect]
     Active Substance: GLIMEPIRIDE
  5. SUTENT [Concomitant]
     Active Substance: SUNITINIB MALATE
  6. OXYCODONE [Concomitant]
     Active Substance: OXYCODONE
  7. PRADAXA [Concomitant]
     Active Substance: DABIGATRAN ETEXILATE MESYLATE

REACTIONS (1)
  - Blood glucose decreased [None]

NARRATIVE: CASE EVENT DATE: 20150203
